FAERS Safety Report 7132258-2 (Version None)
Quarter: 2010Q4

REPORT INFORMATION
  Report Type: 
  Country: None (occurrence: None)
  Receive Date: 20101202
  Receipt Date: 20101119
  Transmission Date: 20110411
  Serious: Yes (Hospitalization)
  Sender: FDA-Public Use
  Company Number: PHHY2010JP69270

PATIENT
  Sex: Male
  Weight: 60 kg

DRUGS (10)
  1. DIOVAN HCT [Suspect]
     Indication: HYPERTENSION
     Dosage: 1 DF, UNK
     Route: 048
     Dates: start: 20100805, end: 20100922
  2. 8-HOUR BAYER [Concomitant]
     Dosage: 100MG
     Route: 048
     Dates: start: 20091027
  3. PARIET [Concomitant]
     Dosage: 10MG
     Dates: start: 20091027
  4. CRESTOR [Concomitant]
     Dosage: 2.5MG
     Dates: start: 20091027
  5. ARTIST [Concomitant]
     Dosage: 10MG
     Route: 048
     Dates: start: 20091027
  6. ADALAT [Concomitant]
     Dosage: UNK
     Dates: start: 20091027
  7. AMARYL [Concomitant]
     Dosage: 1MG
     Route: 048
     Dates: start: 20070811
  8. GLYCORAN [Concomitant]
     Dosage: 500MG
     Route: 048
     Dates: start: 20091027
  9. BASEN [Concomitant]
     Dosage: 0.9MG
     Dates: start: 20091027
  10. MYSLEE [Concomitant]
     Dosage: 10MG
     Route: 048
     Dates: start: 20090502

REACTIONS (6)
  - ASTHENIA [None]
  - DIZZINESS [None]
  - FEELING ABNORMAL [None]
  - HYPOCHLORAEMIA [None]
  - HYPONATRAEMIA [None]
  - MUSCULAR WEAKNESS [None]
